FAERS Safety Report 6476773-3 (Version None)
Quarter: 2009Q4

REPORT INFORMATION
  Report Type: 
  Country: None (occurrence: None)
  Receive Date: 20091207
  Receipt Date: 20091204
  Transmission Date: 20100525
  Serious: Yes (Death, Other)
  Sender: FDA-Public Use
  Company Number: PHEH2009US16675

PATIENT
  Sex: Female

DRUGS (9)
  1. EXJADE [Suspect]
     Indication: MYELODYSPLASTIC SYNDROME
     Dosage: 1000 MG, QD
     Route: 048
     Dates: start: 20091015, end: 20091110
  2. EXJADE [Suspect]
     Indication: IRON OVERLOAD
  3. COREG [Concomitant]
  4. PRILOSEC [Concomitant]
  5. LIPITOR [Concomitant]
  6. JANUVIA [Concomitant]
  7. MULTI-VITAMINS [Concomitant]
  8. OSCAL [Concomitant]
  9. PACERONE [Concomitant]

REACTIONS (4)
  - DEATH [None]
  - FRACTURE [None]
  - SERUM FERRITIN INCREASED [None]
  - URINARY TRACT INFECTION [None]
